FAERS Safety Report 12656855 (Version 3)
Quarter: 2016Q4

REPORT INFORMATION
  Report Type: Spontaneous
  Country: ES (occurrence: ES)
  Receive Date: 20160816
  Receipt Date: 20161006
  Transmission Date: 20170207
  Serious: Yes (Other)
  Sender: FDA-Public Use
  Company Number: ES-GILEAD-2016-0227925

PATIENT
  Age: 53 Year
  Sex: Female

DRUGS (2)
  1. ATRIPLA [Suspect]
     Active Substance: EFAVIRENZ\EMTRICITABINE\TENOFOVIR DISOPROXIL FUMARATE
     Indication: HIV INFECTION CDC GROUP IV SUBGROUP E
     Dosage: 1 DF, QD
     Route: 048
     Dates: start: 201002, end: 20160718
  2. CINCHOCAINE HYDROCHLORIDE W/MENTHOL/PREDNISOL [Concomitant]
     Indication: HAEMORRHOIDS
     Route: 061

REACTIONS (2)
  - Osteoporosis [Not Recovered/Not Resolved]
  - Tibia fracture [Recovering/Resolving]

NARRATIVE: CASE EVENT DATE: 20151204
